FAERS Safety Report 7381401-9 (Version None)
Quarter: 2011Q1

REPORT INFORMATION
  Report Type: 
  Country: None (occurrence: None)
  Receive Date: 20110322
  Receipt Date: 20110308
  Transmission Date: 20110831
  Serious: Yes (Death)
  Sender: FDA-Public Use
  Company Number: AE 2011-089

PATIENT
  Age: 53 Year
  Sex: Female

DRUGS (24)
  1. FLUTICASONE NASAL SPRAY [Concomitant]
  2. PINDOLOL [Concomitant]
  3. SERTRALINE HYDROCHLORIDE [Concomitant]
  4. BENEFIBER [Concomitant]
  5. CALCIUM/VITAMIN D [Concomitant]
  6. ASPIRIN [Concomitant]
  7. HEORRHOIDAL HC [Concomitant]
  8. MELATONIN [Concomitant]
  9. DIVALPROEX [Concomitant]
  10. DOCUSATE SODIUM [Concomitant]
  11. LITHIUM CARBONATE [Concomitant]
  12. METAMUCIL-2 [Concomitant]
  13. KLOR-CON [Concomitant]
  14. VITAMIN B-12 [Concomitant]
  15. FAZACLO ODT [Suspect]
     Indication: PSYCHOTIC DISORDER
     Dosage: 600 MG DAILY PO
     Route: 048
     Dates: start: 20110307, end: 20110301
  16. FAZACLO ODT [Suspect]
     Indication: AFFECTIVE DISORDER
     Dosage: 600 MG DAILY PO
     Route: 048
     Dates: start: 20110307, end: 20110301
  17. CENTRUM [Concomitant]
  18. POLYETHYLENE GLYCOL [Concomitant]
  19. FOLIC ACID [Concomitant]
  20. FUROSEMIDE [Concomitant]
  21. LEVOTHYROXINE [Concomitant]
  22. MIRTAZAPINE [Concomitant]
  23. NAMENDA [Concomitant]
  24. LEVETIRACETAM [Concomitant]

REACTIONS (1)
  - DEATH [None]
